FAERS Safety Report 7971738-4 (Version None)
Quarter: 2011Q4

REPORT INFORMATION
  Report Type: 
  Country: None (occurrence: None)
  Receive Date: 20111212
  Receipt Date: 20110504
  Transmission Date: 20120403
  Serious: No
  Sender: FDA-Public Use
  Company Number: US-MUTUAL PHARMACEUTICAL COMPANY, INC.-PRFN20110001

PATIENT
  Sex: Female
  Weight: 74.91 kg

DRUGS (6)
  1. COMBIVENT [Concomitant]
     Indication: CHRONIC OBSTRUCTIVE PULMONARY DISEASE
  2. FLOVENT [Concomitant]
     Indication: CHRONIC OBSTRUCTIVE PULMONARY DISEASE
  3. WARFARIN SODIUM [Suspect]
     Indication: ANTICOAGULANT THERAPY
     Route: 048
  4. EPLERENONE [Concomitant]
     Indication: PULMONARY HYPERTENSION
     Route: 048
  5. VERAPAMIL [Concomitant]
     Indication: HYPERTENSION
     Route: 048
  6. PROPAFENONE HCL [Suspect]
     Indication: ARRHYTHMIA
     Route: 048
     Dates: start: 20110426

REACTIONS (1)
  - EYE HAEMORRHAGE [None]
